FAERS Safety Report 9637503 (Version 2)
Quarter: 2013Q4

REPORT INFORMATION
  Report Type: Report from Study
  Country: US (occurrence: US)
  Receive Date: 20131022
  Receipt Date: 20131025
  Transmission Date: 20140711
  Serious: Yes (Hospitalization)
  Sender: FDA-Public Use
  Company Number: US-JNJFOC-20131010202

PATIENT
  Age: 12 Year
  Sex: Female
  Weight: 75.5 kg

DRUGS (10)
  1. REMICADE [Suspect]
     Indication: CROHN^S DISEASE
     Route: 042
     Dates: start: 20101018
  2. REMICADE [Suspect]
     Indication: CROHN^S DISEASE
     Route: 042
     Dates: start: 20100831
  3. HUMIRA [Concomitant]
     Indication: CROHN^S DISEASE
     Route: 065
     Dates: start: 20120525
  4. HUMIRA [Concomitant]
     Indication: CROHN^S DISEASE
     Route: 065
     Dates: start: 20130709
  5. HUMIRA [Concomitant]
     Indication: CROHN^S DISEASE
     Route: 065
     Dates: start: 20101028
  6. HUMIRA [Concomitant]
     Indication: CROHN^S DISEASE
     Route: 065
     Dates: start: 20130430
  7. HUMIRA [Concomitant]
     Indication: CROHN^S DISEASE
     Route: 065
     Dates: start: 20111026
  8. HUMIRA [Concomitant]
     Indication: CROHN^S DISEASE
     Route: 065
     Dates: start: 20110511
  9. PREDNISONE [Concomitant]
     Indication: CROHN^S DISEASE
     Route: 065
  10. NEXIUM [Concomitant]
     Indication: CROHN^S DISEASE
     Route: 065

REACTIONS (2)
  - Crohn^s disease [Recovered/Resolved]
  - Rotavirus test positive [Recovered/Resolved]
